FAERS Safety Report 9928440 (Version 1)
Quarter: 2014Q1

REPORT INFORMATION
  Report Type: Spontaneous
  Country: US (occurrence: None)
  Receive Date: 20140226
  Receipt Date: 20140226
  Transmission Date: 20141002
  Serious: No
  Sender: FDA-Public Use
  Company Number: None

PATIENT
  Sex: Female

DRUGS (3)
  1. VELCADE [Suspect]
     Indication: PLASMA CELL MYELOMA
     Route: 042
     Dates: start: 20090601, end: 20091201
  2. DEXAMETHASONE [Suspect]
     Indication: PLASMA CELL MYELOMA
     Dates: start: 20090601, end: 20091201
  3. ZOFRAN [Concomitant]

REACTIONS (5)
  - Neutropenia [None]
  - Neuropathy peripheral [None]
  - Fatigue [None]
  - Neuralgia [None]
  - Anaemia [None]
